FAERS Safety Report 7438594-4 (Version None)
Quarter: 2011Q2

REPORT INFORMATION
  Report Type: 
  Country: None (occurrence: None)
  Receive Date: 20110426
  Receipt Date: 20110420
  Transmission Date: 20111010
  Serious: Yes (Death, Other)
  Sender: FDA-Public Use
  Company Number: FR-PFIZER INC-2011066410

PATIENT
  Age: 74 Year
  Sex: Male
  Weight: 74 kg

DRUGS (10)
  1. DILTIAZEM HCL [Concomitant]
     Indication: ATRIAL FIBRILLATION
     Dosage: UNK
     Route: 042
     Dates: start: 20110311
  2. SUFENTA PRESERVATIVE FREE [Concomitant]
     Dosage: 2.58 MG, UNK
     Route: 042
     Dates: start: 20110215
  3. SOLU-MEDROL [Concomitant]
     Dosage: UNK
     Route: 042
     Dates: start: 20110215
  4. VFEND [Suspect]
     Indication: BRONCHOPULMONARY ASPERGILLOSIS ALLERGIC
     Dosage: 200 MG, 2X/DAY
     Route: 048
     Dates: start: 20101015
  5. NEXIUM [Concomitant]
     Dosage: UNK
     Route: 048
     Dates: start: 20110226
  6. LIPANTHYL [Concomitant]
     Dosage: UNK
     Route: 048
     Dates: start: 20110215
  7. ATROVENT [Concomitant]
     Dosage: UNK
     Dates: start: 20110215
  8. CORDARONE [Concomitant]
     Indication: ATRIAL FIBRILLATION
     Dosage: UNK
     Route: 042
     Dates: start: 20110311
  9. LASIX [Concomitant]
     Dosage: UNK
     Route: 042
     Dates: start: 20110215
  10. BRICANYL [Concomitant]
     Dosage: UNK
     Dates: start: 20110215

REACTIONS (2)
  - CARDIOGENIC SHOCK [None]
  - VENTRICULAR FIBRILLATION [None]
